FAERS Safety Report 17279377 (Version 2)
Quarter: 2020Q1

REPORT INFORMATION
  Report Type: Report from Study
  Country: US (occurrence: US)
  Receive Date: 20200116
  Receipt Date: 20200219
  Transmission Date: 20200409
  Serious: Yes (Hospitalization)
  Sender: FDA-Public Use
  Company Number: US-ACTELION-A-NJ2019-199373

PATIENT
  Sex: Female
  Weight: 59.86 kg

DRUGS (7)
  1. UPTRAVI [Suspect]
     Active Substance: SELEXIPAG
     Dosage: 200 MCG AM, 400 MCG PM
     Route: 048
  2. FELODIPINE. [Concomitant]
     Active Substance: FELODIPINE
  3. UPTRAVI [Suspect]
     Active Substance: SELEXIPAG
     Indication: PULMONARY ARTERIAL HYPERTENSION
     Dosage: 600 MCG, BID
     Route: 048
  4. UPTRAVI [Suspect]
     Active Substance: SELEXIPAG
     Dosage: 200 MCG, BID
     Route: 048
  5. TYVASO [Concomitant]
     Active Substance: TREPROSTINIL
  6. TADALAFIL. [Concomitant]
     Active Substance: TADALAFIL
  7. UPTRAVI [Suspect]
     Active Substance: SELEXIPAG
     Dosage: 400 MCG, BID
     Route: 048

REACTIONS (8)
  - Diarrhoea [Unknown]
  - Nausea [Unknown]
  - Upper limb fracture [Unknown]
  - Pain in extremity [Unknown]
  - Urinary tract infection [Unknown]
  - Pain [Unknown]
  - Arthralgia [Unknown]
  - Fall [Unknown]
